FAERS Safety Report 24267099 (Version 2)
Quarter: 2025Q3

REPORT INFORMATION
  Report Type: Spontaneous
  Country: US (occurrence: US)
  Receive Date: 20240830
  Receipt Date: 20250821
  Transmission Date: 20251020
  Serious: No
  Sender: TAKEDA
  Company Number: US-TAKEDA-2024TUS085732

PATIENT
  Sex: Male

DRUGS (1)
  1. ADZYNMA [Suspect]
     Active Substance: ADAMTS13, RECOMBINANT-KRHN
     Indication: Thrombotic thrombocytopenic purpura

REACTIONS (2)
  - Increased tendency to bruise [Unknown]
  - Product dose omission issue [Unknown]
